FAERS Safety Report 17472684 (Version 1)
Quarter: 2020Q1

REPORT INFORMATION
  Report Type: Spontaneous
  Country: US (occurrence: US)
  Receive Date: 20200227
  Receipt Date: 20200227
  Transmission Date: 20200409
  Serious: No
  Sender: FDA-Public Use
  Company Number: None

PATIENT
  Age: 51 Year
  Sex: Female
  Weight: 54.45 kg

DRUGS (6)
  1. HYDROCODONE/ACETAMINOPHEN 7.5-325 T [Suspect]
     Active Substance: ACETAMINOPHEN\HYDROCODONE
     Indication: SPINAL OSTEOARTHRITIS
     Dosage: ?          QUANTITY:1 TABLET(S);?
     Route: 048
     Dates: start: 20200217, end: 20200217
  2. METHOCARBAMOL. [Concomitant]
     Active Substance: METHOCARBAMOL
  3. ADIPEX P [Concomitant]
  4. ADVIL [Concomitant]
     Active Substance: IBUPROFEN
  5. HYDROCODONE/ACETAMINOPHEN 7.5-325 T [Suspect]
     Active Substance: ACETAMINOPHEN\HYDROCODONE
     Indication: VERTEBRAL FORAMINAL STENOSIS
     Dosage: ?          QUANTITY:1 TABLET(S);?
     Route: 048
     Dates: start: 20200217, end: 20200217
  6. PROTONIX [Concomitant]
     Active Substance: PANTOPRAZOLE SODIUM

REACTIONS (6)
  - Product substitution issue [None]
  - Inadequate analgesia [None]
  - Nausea [None]
  - Dizziness [None]
  - Drug ineffective [None]
  - Somnolence [None]

NARRATIVE: CASE EVENT DATE: 20200217
